FAERS Safety Report 24115967 (Version 3)
Quarter: 2024Q3

REPORT INFORMATION
  Report Type: Report from Study
  Country: DE (occurrence: DE)
  Receive Date: 20240722
  Receipt Date: 20240919
  Transmission Date: 20241017
  Serious: Yes (Other)
  Sender: NOVARTIS
  Company Number: DE-002147023-NVSC2024DE147532

PATIENT
  Sex: Female

DRUGS (1)
  1. MAYZENT [Suspect]
     Active Substance: SIPONIMOD
     Indication: Secondary progressive multiple sclerosis
     Dosage: 2 MG, QD
     Route: 048
     Dates: start: 20221020

REACTIONS (2)
  - Leukopenia [Recovered/Resolved]
  - Neutropenia [Recovered/Resolved]

NARRATIVE: CASE EVENT DATE: 20240709
